FAERS Safety Report 18330985 (Version 1)
Quarter: 2020Q3

REPORT INFORMATION
  Report Type: Spontaneous
  Country: FR (occurrence: FR)
  Receive Date: 20200930
  Receipt Date: 20200930
  Transmission Date: 20201103
  Serious: Yes (Hospitalization, Other)
  Sender: FDA-Public Use
  Company Number: FR-SAMSUNG BIOEPIS-SB-2020-30005

PATIENT
  Age: 51 Year
  Sex: Male

DRUGS (3)
  1. FLIXABI [Suspect]
     Active Substance: INFLIXIMAB
     Indication: BEHCET^S SYNDROME
     Dosage: UNKNOWN
     Route: 065
     Dates: start: 20181207, end: 20190517
  2. REMICADE [Suspect]
     Active Substance: INFLIXIMAB
     Indication: PRODUCT USED FOR UNKNOWN INDICATION
     Dosage: UNKNOWN
     Route: 042
  3. CELLCEPT [Suspect]
     Active Substance: MYCOPHENOLATE MOFETIL\MYCOPHENOLATE MOFETIL HYDROCHLORIDE
     Indication: BEHCET^S SYNDROME
     Dosage: UNKNOWN
     Route: 065
     Dates: start: 2014, end: 2017

REACTIONS (11)
  - Myocardial necrosis [Unknown]
  - Acute kidney injury [Unknown]
  - Vomiting [Unknown]
  - Weight increased [Unknown]
  - Off label use [Unknown]
  - Hepatocellular injury [Unknown]
  - Diarrhoea [Unknown]
  - Malaise [Unknown]
  - Product use in unapproved indication [Unknown]
  - Rectal haemorrhage [Unknown]
  - Urinary tract infection [Unknown]

NARRATIVE: CASE EVENT DATE: 20190529
